FAERS Safety Report 5995988-1 (Version None)
Quarter: 2008Q4

REPORT INFORMATION
  Report Type: 
  Country: None (occurrence: None)
  Receive Date: 20081212
  Receipt Date: 20081006
  Transmission Date: 20090506
  Serious: No
  Sender: FDA-Public Use
  Company Number: US-ABBOTT-08P-163-0480122-00

PATIENT
  Sex: Female

DRUGS (1)
  1. HUMIRA [Suspect]
     Indication: PSORIATIC ARTHROPATHY
     Dates: start: 20080819

REACTIONS (5)
  - HYPERHIDROSIS [None]
  - OEDEMA PERIPHERAL [None]
  - PANIC ATTACK [None]
  - SINUSITIS [None]
  - URINARY TRACT INFECTION [None]
